FAERS Safety Report 14983176 (Version 1)
Quarter: 2018Q2

REPORT INFORMATION
  Report Type: Spontaneous
  Country: US (occurrence: US)
  Receive Date: 20180607
  Receipt Date: 20180607
  Transmission Date: 20180711
  Serious: Yes (Hospitalization, Other)
  Sender: FDA-Public Use
  Company Number: US-ROCHE-2134429

PATIENT
  Age: 61 Year
  Sex: Male
  Weight: 113.5 kg

DRUGS (4)
  1. PREDNISONE. [Suspect]
     Active Substance: PREDNISONE
     Indication: PRODUCT USED FOR UNKNOWN INDICATION
     Dosage: NO
     Route: 065
     Dates: start: 20150724
  2. RITUXAN [Suspect]
     Active Substance: RITUXIMAB
     Indication: GRANULOMATOSIS WITH POLYANGIITIS
     Dosage: 4 INFUSIONS A YEAR ;ONGOING: YES
     Route: 042
     Dates: start: 20150724
  3. PREDNISONE. [Suspect]
     Active Substance: PREDNISONE
     Dosage: YES
     Route: 065
  4. INSULIN [Concomitant]
     Active Substance: INSULIN NOS
     Dosage: YES
     Route: 065

REACTIONS (10)
  - Feeding disorder [Recovered/Resolved]
  - Traumatic lung injury [Not Recovered/Not Resolved]
  - Diabetes mellitus [Not Recovered/Not Resolved]
  - Platelet count decreased [Unknown]
  - Fatigue [Not Recovered/Not Resolved]
  - Somnolence [Not Recovered/Not Resolved]
  - Exercise tolerance decreased [Not Recovered/Not Resolved]
  - Asthenia [Not Recovered/Not Resolved]
  - Nephropathy [Not Recovered/Not Resolved]
  - Gait disturbance [Recovered/Resolved]

NARRATIVE: CASE EVENT DATE: 201805
